FAERS Safety Report 6342077-2 (Version None)
Quarter: 2009Q3

REPORT INFORMATION
  Report Type: 
  Country: None (occurrence: None)
  Receive Date: 20090903
  Receipt Date: 20090821
  Transmission Date: 20100115
  Serious: No
  Sender: FDA-Public Use
  Company Number: 361438

PATIENT
  Age: 81 Year
  Sex: Male
  Weight: 60 kg

DRUGS (16)
  1. PRECEDEX [Suspect]
     Indication: SEDATION
     Dosage: 0.2 MCG/KG/HR, INTRAVENOUS
     Route: 042
     Dates: start: 20081108, end: 20081110
  2. CARVEDILOL [Concomitant]
  3. CANDESARTAN CILEXETIL [Concomitant]
  4. TEMOCAPRIL HYDROCHLORIDE [Concomitant]
  5. NIFEDIPINE [Concomitant]
  6. IMIDAPRIL HYDROCHLORIDE [Concomitant]
  7. FUROSEMIDE [Concomitant]
  8. ALLOPURINOL [Concomitant]
  9. FENTANYL [Concomitant]
  10. SEVOFLURANE [Concomitant]
  11. REMIFENTANIL [Concomitant]
  12. VECURONIUM BROMIDE [Concomitant]
  13. LANSOPRAZOLE [Concomitant]
  14. GABEXATE MESILATE [Concomitant]
  15. CEFMETAZOLE SODIUM [Concomitant]
  16. MEROPENEM TRIHYDRATE [Concomitant]

REACTIONS (2)
  - HYPOALBUMINAEMIA [None]
  - PROTHROMBIN TIME PROLONGED [None]
